FAERS Safety Report 25505945 (Version 2)
Quarter: 2025Q3

REPORT INFORMATION
  Report Type: Report from Study
  Country: CA (occurrence: CA)
  Receive Date: 20250702
  Receipt Date: 20250901
  Transmission Date: 20251021
  Serious: Yes (Other)
  Sender: BRISTOL-MYERS SQUIBB COMPANY
  Company Number: CA-BRISTOL-MYERS SQUIBB COMPANY-2025-071944

PATIENT
  Age: 85 Year
  Sex: Male
  Weight: 65.6 kg

DRUGS (4)
  1. REBLOZYL [Suspect]
     Active Substance: LUSPATERCEPT-AAMT
     Indication: Myelodysplastic syndrome
     Route: 058
  2. REBLOZYL [Suspect]
     Active Substance: LUSPATERCEPT-AAMT
     Indication: Crohn^s disease
     Route: 058
     Dates: start: 20241105
  3. REBLOZYL [Suspect]
     Active Substance: LUSPATERCEPT-AAMT
     Route: 058
     Dates: start: 20211108
  4. REBLOZYL [Suspect]
     Active Substance: LUSPATERCEPT-AAMT
     Dosage: 75MG/ML
     Route: 058

REACTIONS (6)
  - Tendon rupture [Not Recovered/Not Resolved]
  - Haematoma [Unknown]
  - Loss of consciousness [Unknown]
  - Haemoglobin decreased [Not Recovered/Not Resolved]
  - Renal impairment [Unknown]
  - Gout [Not Recovered/Not Resolved]

NARRATIVE: CASE EVENT DATE: 20250501
